FAERS Safety Report 5579030-2 (Version None)
Quarter: 2008Q1

REPORT INFORMATION
  Report Type: 
  Country: None (occurrence: None)
  Receive Date: 20080102
  Receipt Date: 20071220
  Transmission Date: 20080703
  Serious: Yes (Other)
  Sender: FDA-Public Use
  Company Number: MA-AVENTIS-200721797GDDC

PATIENT
  Age: 23 Year
  Sex: Female
  Weight: 53 kg

DRUGS (2)
  1. LANTUS [Suspect]
     Route: 058
     Dates: start: 20060504
  2. ACTRAPID INSULIN NOVO [Concomitant]
     Route: 058

REACTIONS (2)
  - BREAST CANCER [None]
  - NODULE [None]
